FAERS Safety Report 18272634 (Version 1)
Quarter: 2020Q3

REPORT INFORMATION
  Report Type: Spontaneous
  Country: DE (occurrence: DE)
  Receive Date: 20200916
  Receipt Date: 20200916
  Transmission Date: 20201103
  Serious: Yes (Other)
  Sender: FDA-Public Use
  Company Number: DE-MYLANLABS-2020M1078103

PATIENT
  Age: 51 Year
  Sex: Female
  Weight: 57 kg

DRUGS (2)
  1. CANDESARTAN. [Suspect]
     Active Substance: CANDESARTAN
     Indication: HYPERTENSION
     Dosage: EINNAHME BIS 31.08.2020 GEPLANT
     Route: 048
  2. CANDESARTAN. [Suspect]
     Active Substance: CANDESARTAN
     Dosage: 8 BZW. SP?TER 16MG
     Route: 048
     Dates: start: 20200301

REACTIONS (10)
  - Gastrointestinal inflammation [Unknown]
  - Skin wound [Unknown]
  - Pharyngeal swelling [Recovered/Resolved]
  - Mouth swelling [Recovered/Resolved]
  - Cardiac aneurysm [Unknown]
  - Pigmentation disorder [Recovered/Resolved with Sequelae]
  - Dry skin [Recovered/Resolved with Sequelae]
  - Skin atrophy [Recovered/Resolved with Sequelae]
  - Rash [Unknown]
  - Rash macular [Unknown]
